FAERS Safety Report 7478766-6 (Version None)
Quarter: 2011Q2

REPORT INFORMATION
  Report Type: 
  Country: None (occurrence: None)
  Receive Date: 20110513
  Receipt Date: 20110506
  Transmission Date: 20111010
  Serious: Yes (Hospitalization)
  Sender: FDA-Public Use
  Company Number: NL-MEDIMMUNE-MEDI-0012774

PATIENT
  Sex: Female
  Weight: 2.69 kg

DRUGS (2)
  1. SYNAGIS [Suspect]
     Route: 030
     Dates: start: 20110103, end: 20110131
  2. SYNAGIS [Suspect]
     Route: 030
     Dates: start: 20110228, end: 20110228

REACTIONS (2)
  - OLIGODIPSIA [None]
  - PYREXIA [None]
